FAERS Safety Report 21499482 (Version 1)
Quarter: 2022Q4

REPORT INFORMATION
  Report Type: Spontaneous
  Country: US (occurrence: US)
  Receive Date: 20221024
  Receipt Date: 20221024
  Transmission Date: 20230113
  Serious: No
  Sender: FDA-Public Use
  Company Number: US-BAYER-2022A147623

PATIENT
  Age: 80 Year
  Sex: Female

DRUGS (1)
  1. KERENDIA [Suspect]
     Active Substance: FINERENONE
     Indication: Diabetic nephropathy
     Dosage: 10 MG

REACTIONS (3)
  - Palpitations [Recovered/Resolved]
  - Vision blurred [Recovered/Resolved]
  - Feeling jittery [Recovered/Resolved]
